FAERS Safety Report 7639998-7 (Version None)
Quarter: 2011Q3

REPORT INFORMATION
  Report Type: 
  Country: None (occurrence: None)
  Receive Date: 20110727
  Receipt Date: 20110715
  Transmission Date: 20111222
  Serious: Yes (Other)
  Sender: FDA-Public Use
  Company Number: AR-GENENTECH-321880

PATIENT
  Sex: Male

DRUGS (1)
  1. LUCENTIS [Suspect]
     Indication: MACULAR DEGENERATION
     Dosage: 1 DF, 1/MONTH
     Route: 031
     Dates: start: 20101230

REACTIONS (2)
  - EYE HAEMORRHAGE [None]
  - NO THERAPEUTIC RESPONSE [None]
